FAERS Safety Report 17729162 (Version 3)
Quarter: 2021Q1

REPORT INFORMATION
  Report Type: Report from Study
  Country: BR (occurrence: BR)
  Receive Date: 20200430
  Receipt Date: 20210129
  Transmission Date: 20210419
  Serious: Yes (Other)
  Sender: FDA-Public Use
  Company Number: NVSC2020BR100590

PATIENT
  Age: 23 Year
  Sex: Male
  Weight: 95 kg

DRUGS (7)
  1. COSENTYX [Suspect]
     Active Substance: SECUKINUMAB
     Indication: PSORIASIS
     Dosage: 150 MG, QMO (2 AMPOULES)
     Route: 058
     Dates: start: 20200124
  2. COSENTYX [Suspect]
     Active Substance: SECUKINUMAB
     Dosage: UNK
     Route: 065
     Dates: start: 20200131
  3. COSENTYX [Suspect]
     Active Substance: SECUKINUMAB
     Dosage: UNK
     Route: 065
     Dates: start: 20200207
  4. COSENTYX [Suspect]
     Active Substance: SECUKINUMAB
     Dosage: UNK
     Route: 065
     Dates: start: 20200215
  5. PARACETAMOL [Suspect]
     Active Substance: ACETAMINOPHEN
     Indication: OROPHARYNGEAL PAIN
     Dosage: UNK
     Route: 065
  6. COSENTYX [Suspect]
     Active Substance: SECUKINUMAB
     Dosage: 300 MG
     Route: 065
     Dates: start: 20201222
  7. COSENTYX [Suspect]
     Active Substance: SECUKINUMAB
     Dosage: UNK
     Route: 065
     Dates: start: 20200330

REACTIONS (13)
  - Cough [Recovered/Resolved]
  - Nasal discomfort [Recovered/Resolved]
  - Spinal pain [Recovering/Resolving]
  - Influenza [Recovered/Resolved]
  - Dry throat [Recovered/Resolved]
  - Malaise [Unknown]
  - Decreased immune responsiveness [Unknown]
  - Pain [Recovered/Resolved]
  - Spinal disorder [Recovering/Resolving]
  - Sciatica [Recovered/Resolved]
  - Sneezing [Recovered/Resolved]
  - Oropharyngeal pain [Recovered/Resolved]
  - Influenza [Recovered/Resolved]

NARRATIVE: CASE EVENT DATE: 20200215
